FAERS Safety Report 20789615 (Version 1)
Quarter: 2022Q2

REPORT INFORMATION
  Report Type: Spontaneous
  Country: BE (occurrence: BE)
  Receive Date: 20220505
  Receipt Date: 20220505
  Transmission Date: 20220720
  Serious: Yes (Other)
  Sender: FDA-Public Use
  Company Number: BE-BAYER-2022P001840

PATIENT
  Sex: Male

DRUGS (1)
  1. NEXAVAR [Suspect]
     Active Substance: SORAFENIB
     Indication: Dermatofibrosarcoma protuberans
     Dosage: FULL DOSE
     Dates: start: 20220118, end: 20220503

REACTIONS (2)
  - Dermatofibrosarcoma protuberans [None]
  - Off label use [None]

NARRATIVE: CASE EVENT DATE: 20220118
